FAERS Safety Report 16606525 (Version 1)
Quarter: 2019Q3

REPORT INFORMATION
  Report Type: Report from Study
  Country: None (occurrence: BR)
  Receive Date: 20190722
  Receipt Date: 20190722
  Transmission Date: 20191004
  Serious: Yes (Death, Other)
  Sender: FDA-Public Use
  Company Number: BR-ABBVIE-19K-020-2860754-00

PATIENT
  Age: 67 Year
  Sex: Male
  Weight: 76 kg

DRUGS (1)
  1. HUMIRA [Suspect]
     Active Substance: ADALIMUMAB
     Indication: PSORIATIC ARTHROPATHY
     Route: 058
     Dates: start: 20130322, end: 20190619

REACTIONS (12)
  - Cardiogenic shock [Fatal]
  - Asthenia [Unknown]
  - Cardiomegaly [Unknown]
  - Localised oedema [Unknown]
  - Malaise [Not Recovered/Not Resolved]
  - Cardiac failure congestive [Fatal]
  - Dysuria [Unknown]
  - Moaning [Unknown]
  - Pulmonary oedema [Not Recovered/Not Resolved]
  - Eye disorder [Unknown]
  - Unevaluable event [Unknown]
  - Muscular weakness [Unknown]

NARRATIVE: CASE EVENT DATE: 20190619
